FAERS Safety Report 5351736-X (Version None)
Quarter: 2007Q2

REPORT INFORMATION
  Report Type: 
  Country: None (occurrence: None)
  Receive Date: 20070521
  Receipt Date: 20070225
  Transmission Date: 20071010
  Serious: No
  Sender: FDA-Public Use
  Company Number: WAES 0702USA04313

PATIENT
  Age: 48 Year
  Sex: Female

DRUGS (3)
  1. JANUVIA [Suspect]
     Dosage: 100 MG/DAILY/PO
     Route: 048
  2. AVANDIA [Concomitant]
  3. PROTONIX [Concomitant]

REACTIONS (2)
  - ABDOMINAL DISCOMFORT [None]
  - URINE COLOUR ABNORMAL [None]
